FAERS Safety Report 6832244-3 (Version None)
Quarter: 2010Q3

REPORT INFORMATION
  Report Type: 
  Country: None (occurrence: None)
  Receive Date: 20100707
  Receipt Date: 20100630
  Transmission Date: 20110219
  Serious: Yes (Hospitalization, Other)
  Sender: FDA-Public Use
  Company Number: 2010SP034783

PATIENT
  Age: 18 Year
  Sex: Female

DRUGS (2)
  1. CLARITIN [Suspect]
     Indication: URTICARIA
     Dosage: 10 MG; BID; PO
     Route: 048
     Dates: start: 20100607, end: 20100607
  2. VITAMINS (VITAMINS 90003601/) [Suspect]
     Indication: PRODUCT USED FOR UNKNOWN INDICATION
     Dosage: PO
     Route: 048
     Dates: start: 20100608, end: 20100612

REACTIONS (1)
  - TOXIC EPIDERMAL NECROLYSIS [None]
